FAERS Safety Report 4972764-X (Version None)
Quarter: 2006Q2

REPORT INFORMATION
  Report Type: 
  Country: None (occurrence: None)
  Receive Date: 20060414
  Receipt Date: 20060406
  Transmission Date: 20061013
  Serious: Yes (Death)
  Sender: FDA-Public Use
  Company Number: US-JNJFOC-20060402312

PATIENT
  Sex: Female

DRUGS (1)
  1. FENTANYL [Suspect]
     Route: 062

REACTIONS (1)
  - CARDIAC FAILURE CONGESTIVE [None]
